FAERS Safety Report 5392856-3 (Version None)
Quarter: 2007Q3

REPORT INFORMATION
  Report Type: 
  Country: None (occurrence: None)
  Receive Date: 20070720
  Receipt Date: 20070709
  Transmission Date: 20080115
  Serious: Yes (Life-Threatening)
  Sender: FDA-Public Use
  Company Number: GB-PFIZER INC-2007057247

PATIENT
  Sex: Female

DRUGS (10)
  1. GABAPENTIN [Suspect]
  2. AMITRIPTYLINE HCL [Suspect]
  3. ACETYLSALICYLIC ACID SRT [Concomitant]
  4. AMLODIPINE [Concomitant]
  5. CODEINE PHOSPHATE AND ACETAMINOPHEN [Concomitant]
  6. FUROSEMIDE INTENSOL [Concomitant]
  7. METFORMIN HCL [Concomitant]
  8. RAMIPRIL [Concomitant]
  9. SIMVASTATIN [Concomitant]
  10. SOTALOL HYDROCHLORIDE [Concomitant]

REACTIONS (1)
  - PANCYTOPENIA [None]
